FAERS Safety Report 5663427-6 (Version None)
Quarter: 2008Q1

REPORT INFORMATION
  Report Type: 
  Country: None (occurrence: None)
  Receive Date: 20080310
  Receipt Date: 20080222
  Transmission Date: 20080703
  Serious: Yes (Other)
  Sender: FDA-Public Use
  Company Number: 07-002352

PATIENT
  Age: 45 Year
  Sex: Female
  Weight: 71.7 kg

DRUGS (4)
  1. FEMRING [Suspect]
     Indication: HORMONE REPLACEMENT THERAPY
     Dosage: .05 MG, QD, VAGINAL
     Route: 067
     Dates: start: 20070221, end: 20070406
  2. CENESTIN [Concomitant]
  3. FLEXERIL /00428402/(CYCLOBENZAPRINE HYDROCHLORIDE) TABLET [Concomitant]
  4. IMITREX /01044801/(SUMATRIPTAN) TABLET [Concomitant]

REACTIONS (21)
  - ABDOMINAL DISCOMFORT [None]
  - ABDOMINAL DISTENSION [None]
  - ABDOMINAL TENDERNESS [None]
  - ALANINE AMINOTRANSFERASE INCREASED [None]
  - APHASIA [None]
  - BALANCE DISORDER [None]
  - BLOOD GLUCOSE INCREASED [None]
  - BREAST TENDERNESS [None]
  - CONFUSIONAL STATE [None]
  - DECREASED APPETITE [None]
  - DEPRESSION [None]
  - DIZZINESS [None]
  - DYSARTHRIA [None]
  - FLUID RETENTION [None]
  - LIBIDO DECREASED [None]
  - MEAN CELL HAEMOGLOBIN CONCENTRATION INCREASED [None]
  - MEMORY IMPAIRMENT [None]
  - MIGRAINE [None]
  - PHOTOPHOBIA [None]
  - SPEECH DISORDER [None]
  - VISION BLURRED [None]
